FAERS Safety Report 5192638-1 (Version None)
Quarter: 2006Q4

REPORT INFORMATION
  Report Type: 
  Country: None (occurrence: None)
  Receive Date: 20061228
  Receipt Date: 20061218
  Transmission Date: 20070319
  Serious: Yes (Hospitalization)
  Sender: FDA-Public Use
  Company Number: US-JNJFOC-20061205506

PATIENT
  Sex: Female
  Weight: 69.85 kg

DRUGS (3)
  1. ULTRAM [Suspect]
     Indication: HEADACHE
     Dosage: 1-2 TABLETS EVERY 4-6 HOURS AS NEEDED
     Route: 048
  2. KLONOPIN [Concomitant]
     Indication: TREMOR
     Route: 065
  3. TORODOL [Concomitant]
     Indication: HEADACHE
     Route: 065

REACTIONS (6)
  - AFFECT LABILITY [None]
  - FEELING DRUNK [None]
  - HALLUCINATION [None]
  - HEADACHE [None]
  - MUSCLE TWITCHING [None]
  - TREMOR [None]
